FAERS Safety Report 12947358 (Version 1)
Quarter: 2016Q4

REPORT INFORMATION
  Report Type: Spontaneous
  Country: US (occurrence: US)
  Receive Date: 20161116
  Receipt Date: 20161116
  Transmission Date: 20170207
  Serious: Yes (Other)
  Sender: FDA-Public Use
  Company Number: US-PFIZER INC-2016076216

PATIENT
  Age: 65 Year
  Sex: Male

DRUGS (1)
  1. METOPROLOL TARTRATE. [Suspect]
     Active Substance: METOPROLOL TARTRATE
     Dosage: 25 MG, 1X/DAY (TAKING 1/2 THE METOPROLOL AT ONLY 25 MG AT NIGHT INSTEAD OF 50 MG)

REACTIONS (4)
  - Feeling hot [Unknown]
  - Intentional product use issue [Unknown]
  - Feeling abnormal [Unknown]
  - Shock [Unknown]
